FAERS Safety Report 20191954 (Version 2)
Quarter: 2022Q2

REPORT INFORMATION
  Report Type: Spontaneous
  Country: US (occurrence: US)
  Receive Date: 20211216
  Receipt Date: 20220502
  Transmission Date: 20220721
  Serious: No
  Sender: FDA-Public Use
  Company Number: US-AIMMUNE THERAPEUTICS, INC.-2021AIMT00768

PATIENT

DRUGS (2)
  1. PALFORZIA [Suspect]
     Active Substance: PEANUT
     Indication: Food allergy
     Dosage: 200 MG, 1X/DAY
     Route: 048
     Dates: start: 2021, end: 2021
  2. PALFORZIA [Suspect]
     Active Substance: PEANUT
     Dosage: UNK, 1X/DAY, RESUMED
     Route: 048

REACTIONS (2)
  - Gastroenteritis viral [Recovered/Resolved]
  - Vomiting [Recovered/Resolved]

NARRATIVE: CASE EVENT DATE: 20210101
